FAERS Safety Report 21603085 (Version 1)
Quarter: 2022Q4

REPORT INFORMATION
  Report Type: Spontaneous
  Country: FR (occurrence: FR)
  Receive Date: 20221116
  Receipt Date: 20221116
  Transmission Date: 20230113
  Serious: Yes (Hospitalization)
  Sender: FDA-Public Use
  Company Number: None

PATIENT
  Age: 48 Year
  Sex: Male

DRUGS (3)
  1. SIVEXTRO [Suspect]
     Active Substance: TEDIZOLID PHOSPHATE
     Indication: Endocarditis
     Dosage: 200 MG/DAY
     Route: 048
     Dates: start: 20221006, end: 20221011
  2. LINEZOLID [Suspect]
     Active Substance: LINEZOLID
     Indication: Endocarditis
     Dosage: 600 MG PER 12 HOURS
     Route: 048
     Dates: start: 20221011, end: 20221015
  3. LINEZOLID [Suspect]
     Active Substance: LINEZOLID
     Dosage: 600 MG PER 12 HOURS
     Route: 042
     Dates: start: 20220908, end: 20221003

REACTIONS (3)
  - Eosinophilia [Recovering/Resolving]
  - Neutropenia [Recovered/Resolved]
  - Thrombocytopenia [Recovered/Resolved]

NARRATIVE: CASE EVENT DATE: 20221013
